FAERS Safety Report 17073721 (Version 5)
Quarter: 2020Q2

REPORT INFORMATION
  Report Type: Spontaneous
  Country: US (occurrence: US)
  Receive Date: 20191126
  Receipt Date: 20200409
  Transmission Date: 20200713
  Serious: No
  Sender: FDA-Public Use
  Company Number: US-JNJFOC-20191136741

PATIENT
  Age: 35 Year
  Sex: Female
  Weight: 45.85 kg

DRUGS (3)
  1. WOMENS ROGAINE UNSCENTED [Suspect]
     Active Substance: MINOXIDIL
     Dosage: MAY BE 3 SQUIRTS EVERY USAGE
     Route: 061
  2. WOMENS ROGAINE UNSCENTED [Suspect]
     Active Substance: MINOXIDIL
     Indication: ALOPECIA
     Dosage: MAY BE 3 SQUIRTS EVERY USAGE
     Route: 061
     Dates: start: 20190926, end: 20191213
  3. LEVOTHYROXINE. [Concomitant]
     Active Substance: LEVOTHYROXINE
     Indication: HYPOTHYROIDISM
     Route: 065
     Dates: start: 20190415

REACTIONS (4)
  - Application site acne [Recovering/Resolving]
  - Alopecia [Recovering/Resolving]
  - Application site pruritus [Recovering/Resolving]
  - Product use in unapproved indication [Unknown]

NARRATIVE: CASE EVENT DATE: 20190926
